FAERS Safety Report 5289118-1 (Version None)
Quarter: 2007Q1

REPORT INFORMATION
  Report Type: 
  Country: None (occurrence: None)
  Receive Date: 20070124
  Receipt Date: 20061002
  Transmission Date: 20070707
  Serious: Yes (Hospitalization)
  Sender: FDA-Public Use
  Company Number: US200610000845

PATIENT
  Age: 84 Year
  Sex: Male

DRUGS (18)
  1. FORTEO [Suspect]
     Indication: OSTEOPOROSIS
     Dates: start: 20051001
  2. FORTEO [Concomitant]
  3. ALPHAGAN [Concomitant]
  4. ANUSOL /NET/(BISMUTH HYDROXIDE, BISMUTH SUBGALLATE, BORIC ACID, PERUVI [Concomitant]
  5. HYDROCHLOROTHIAZIDE [Concomitant]
  6. ZOCOR [Concomitant]
  7. ATROVENT [Concomitant]
  8. HYTRIN [Concomitant]
  9. ACIPHEX [Concomitant]
  10. VALTREX /UNK/(VALACICLOVIR HYDROCHLORIDE) [Concomitant]
  11. ADVAIR DISKUS 100/50 [Concomitant]
  12. CLONAZEPAM [Concomitant]
  13. TIAZAC [Concomitant]
  14. DIGTEK (DIGOXIN) [Concomitant]
  15. KLOR-CON [Concomitant]
  16. GABAPENTIN [Concomitant]
  17. LASIX [Concomitant]
  18. QUININE SULFATE (QUININE SULFATE) CAPSULE [Concomitant]

REACTIONS (1)
  - PNEUMONIA [None]
